FAERS Safety Report 7096654-4 (Version None)
Quarter: 2010Q4

REPORT INFORMATION
  Report Type: 
  Country: None (occurrence: None)
  Receive Date: 20101110
  Receipt Date: 20101110
  Transmission Date: 20110411
  Serious: No
  Sender: FDA-Public Use
  Company Number: None

PATIENT
  Age: 60 Year
  Sex: Female

DRUGS (1)
  1. TELAVANCIN 750 MG ASTELLAS [Suspect]
     Indication: WOUND INFECTION
     Dosage: 550 MG DAILY IV DRIP
     Route: 041
     Dates: start: 20101101, end: 20101128

REACTIONS (1)
  - BURNING SENSATION [None]
